FAERS Safety Report 5777262-1 (Version None)
Quarter: 2008Q2

REPORT INFORMATION
  Report Type: 
  Country: None (occurrence: None)
  Receive Date: 20080618
  Receipt Date: 20080609
  Transmission Date: 20081010
  Serious: Yes (Hospitalization)
  Sender: FDA-Public Use
  Company Number: US-ELI_LILLY_AND_COMPANY-US200806002195

PATIENT
  Sex: Female
  Weight: 92.063 kg

DRUGS (7)
  1. BYETTA [Suspect]
     Indication: TYPE 2 DIABETES MELLITUS
     Dosage: 5 UG, 2/D
     Route: 058
     Dates: start: 20060101
  2. BYETTA [Suspect]
     Dosage: 10 UG, 2/D
     Route: 058
  3. GLUCOPHAGE [Concomitant]
     Indication: TYPE 2 DIABETES MELLITUS
     Dosage: 500 MG, 2/D
  4. CELEXA [Concomitant]
     Indication: DEPRESSION
     Dosage: 10 MG, DAILY (1/D)
  5. AVAPRO [Concomitant]
     Indication: HYPERTENSION
     Dosage: 150 MG, DAILY (1/D)
  6. DYAZIDE [Concomitant]
     Indication: FLUID RETENTION
  7. CHILDRENS CHEWABLE VITAMINS [Concomitant]

REACTIONS (5)
  - ABDOMINAL PAIN UPPER [None]
  - CONSTIPATION [None]
  - DIVERTICULITIS [None]
  - MALAISE [None]
  - NAUSEA [None]
